FAERS Safety Report 7914141-5 (Version None)
Quarter: 2011Q4

REPORT INFORMATION
  Report Type: 
  Country: None (occurrence: None)
  Receive Date: 20111115
  Receipt Date: 20111109
  Transmission Date: 20120403
  Serious: Yes (Other)
  Sender: FDA-Public Use
  Company Number: US-B.I. PHARMACEUTICALS,INC./RIDGEFIELD-2011-BP-23568BP

PATIENT
  Sex: Male

DRUGS (17)
  1. EPIVIR [Concomitant]
     Indication: HIV TEST POSITIVE
     Dosage: 300 MG
     Dates: start: 20090716
  2. PREZISTA [Concomitant]
     Indication: DIABETES MELLITUS
     Dates: start: 20070418
  3. GLUMETZA [Concomitant]
     Indication: DIABETES MELLITUS
     Dates: start: 20100514
  4. LANTUS [Concomitant]
     Indication: DIABETES MELLITUS
     Dosage: 15 U
     Dates: start: 20100916
  5. ASPIRIN [Concomitant]
     Dosage: 81 MG
     Dates: start: 20110921
  6. VALTREX [Concomitant]
     Indication: HERPES SIMPLEX
     Dosage: 500 MG
     Dates: start: 20080404
  7. CRESTOR [Concomitant]
     Indication: BLOOD CHOLESTEROL INCREASED
     Dosage: 20 MG
     Dates: start: 20041020
  8. PRADAXA [Suspect]
     Indication: ATRIAL FIBRILLATION
     Dosage: 300 MG
     Route: 048
     Dates: start: 20110901
  9. DIOVAN [Concomitant]
     Indication: HYPERTENSION
     Dosage: 80 MG
     Dates: start: 20100727
  10. TOPROL-XL [Concomitant]
     Indication: HYPERTENSION
     Dosage: 25 MG
     Dates: start: 20070807
  11. INTELENCE [Concomitant]
     Indication: HIV TEST POSITIVE
     Dates: start: 20090716
  12. CLINDAMYCIN [Concomitant]
     Indication: FACE AND MOUTH X-RAY ABNORMAL
  13. ISENTRESS [Concomitant]
     Indication: HIV TEST POSITIVE
     Dates: start: 20080404
  14. NORVIR [Concomitant]
     Indication: HIV TEST POSITIVE
     Dates: start: 20070418
  15. ACTOS [Concomitant]
     Indication: DIABETES MELLITUS
     Dosage: 45 MG
     Dates: start: 20080704
  16. DIGOXIN [Concomitant]
     Indication: ATRIAL FIBRILLATION
     Dosage: 0.25 MG
     Dates: start: 20080221
  17. GLIMEPIRIDE [Concomitant]
     Indication: DIABETES MELLITUS
     Dates: start: 20100514

REACTIONS (5)
  - WHITE BLOOD CELL COUNT DECREASED [None]
  - ERUCTATION [None]
  - NAUSEA [None]
  - FATIGUE [None]
  - ABDOMINAL PAIN UPPER [None]
